FAERS Safety Report 6969468-0 (Version None)
Quarter: 2010Q3

REPORT INFORMATION
  Report Type: 
  Country: None (occurrence: None)
  Receive Date: 20100902
  Receipt Date: 20100820
  Transmission Date: 20110219
  Serious: Yes (Life-Threatening, Hospitalization, Other)
  Sender: FDA-Public Use
  Company Number: A-NJ2010-38618

PATIENT
  Age: 17 Year
  Sex: Male

DRUGS (3)
  1. TRACLEER [Suspect]
     Indication: PULMONARY ARTERIAL HYPERTENSION
     Dosage: 125 MG, BID, ORAL, 62.5 MG, BID, ORAL, 31.25 MG, BID, ORAL
     Route: 048
     Dates: start: 20060330, end: 20060501
  2. TRACLEER [Suspect]
     Indication: PULMONARY ARTERIAL HYPERTENSION
     Dosage: 125 MG, BID, ORAL, 62.5 MG, BID, ORAL, 31.25 MG, BID, ORAL
     Route: 048
     Dates: start: 20060501, end: 20070710
  3. TRACLEER [Suspect]
     Indication: PULMONARY ARTERIAL HYPERTENSION
     Dosage: 125 MG, BID, ORAL, 62.5 MG, BID, ORAL, 31.25 MG, BID, ORAL
     Route: 048
     Dates: start: 20070711

REACTIONS (6)
  - HAEMOPTYSIS [None]
  - INCISION SITE INFECTION [None]
  - INCISION SITE PAIN [None]
  - OFF LABEL USE [None]
  - PAIN [None]
  - POST PROCEDURAL COMPLICATION [None]
